FAERS Safety Report 6197861-5 (Version None)
Quarter: 2009Q2

REPORT INFORMATION
  Report Type: 
  Country: None (occurrence: None)
  Receive Date: 20090521
  Receipt Date: 20090515
  Transmission Date: 20091009
  Serious: Yes (Hospitalization)
  Sender: FDA-Public Use
  Company Number: B0574721A

PATIENT
  Sex: Female

DRUGS (1)
  1. NIQUITIN PATCH [Suspect]
     Route: 062

REACTIONS (1)
  - NONSPECIFIC REACTION [None]
